FAERS Safety Report 9129195 (Version 1)
Quarter: 2013Q1

REPORT INFORMATION
  Report Type: Spontaneous
  Country: US (occurrence: US)
  Receive Date: 20130125
  Receipt Date: 20130125
  Transmission Date: 20140127
  Serious: Yes (Other)
  Sender: FDA-Public Use
  Company Number: US-UCBSA-076493

PATIENT
  Sex: 0

DRUGS (2)
  1. KEPPRA [Suspect]
     Dosage: 750 MG
     Route: 042
  2. TEGRETOL [Concomitant]

REACTIONS (1)
  - Torsade de pointes [Unknown]
